FAERS Safety Report 4502632-9 (Version None)
Quarter: 2004Q4

REPORT INFORMATION
  Report Type: 
  Country: None (occurrence: None)
  Receive Date: 20041110
  Receipt Date: 20041028
  Transmission Date: 20050328
  Serious: Yes (Hospitalization)
  Sender: FDA-Public Use
  Company Number: F01200401591

PATIENT
  Age: 62 Year
  Sex: Female

DRUGS (6)
  1. OXALIPLATIN                      SOLUTION [Suspect]
     Indication: COLORECTAL CANCER METASTATIC
     Route: 042
  2. CAPECITABINE [Suspect]
     Dosage: 1000 MG/M2 TWICE DAILY FROM D1 TO D14
     Route: 048
     Dates: start: 20040523
  3. BEVACIZUMAB                SOLUTION [Suspect]
     Indication: COLORECTAL CANCER METASTATIC
     Dosage: Q3W, 1 UNIT Q3W
     Route: 042
  4. SLOW FE          (FERROUS SULFATE) [Concomitant]
  5. RANITIDINE [Concomitant]
  6. NEOMYCIN [Concomitant]

REACTIONS (11)
  - ASTHENIA [None]
  - BLOOD PRESSURE INCREASED [None]
  - BLOOD UREA INCREASED [None]
  - BODY TEMPERATURE INCREASED [None]
  - DEHYDRATION [None]
  - ENCEPHALITIS [None]
  - ENCEPHALOPATHY [None]
  - HEPATIC FAILURE [None]
  - HYPOKALAEMIA [None]
  - HYPONATRAEMIA [None]
  - METASTASES TO CENTRAL NERVOUS SYSTEM [None]
